FAERS Safety Report 7140524-X (Version None)
Quarter: 2010Q4

REPORT INFORMATION
  Report Type: 
  Country: None (occurrence: None)
  Receive Date: 20101207
  Receipt Date: 20100921
  Transmission Date: 20110411
  Serious: Yes (Other)
  Sender: FDA-Public Use
  Company Number: US-RB-003373-10

PATIENT
  Age: 48 Year
  Sex: Female

DRUGS (5)
  1. MUCINEX DM [Suspect]
     Route: 048
     Dates: start: 20100105
  2. ZOLOFT [Concomitant]
  3. HYDROXINE [Concomitant]
  4. CALCIUM [Concomitant]
  5. HORMONES [Concomitant]

REACTIONS (7)
  - DELUSION [None]
  - DIARRHOEA [None]
  - FEELING ABNORMAL [None]
  - HEADACHE [None]
  - PANIC ATTACK [None]
  - SOMNOLENCE [None]
  - SPEECH DISORDER [None]
